FAERS Safety Report 8502406-8 (Version None)
Quarter: 2012Q3

REPORT INFORMATION
  Report Type: 
  Country: None (occurrence: None)
  Receive Date: 20120711
  Receipt Date: 20120702
  Transmission Date: 20120928
  Serious: Yes (Hospitalization)
  Sender: FDA-Public Use
  Company Number: US-JNJFOC-20120702156

PATIENT
  Sex: Male
  Weight: 57.3 kg

DRUGS (17)
  1. LOVENOX [Concomitant]
     Route: 058
  2. FLAGYL [Concomitant]
     Route: 048
  3. ZOFRAN [Concomitant]
  4. FLAGYL [Concomitant]
     Route: 048
  5. MEPHYTON [Concomitant]
  6. REGLAN [Concomitant]
  7. GENTAMYCIN-MP [Concomitant]
     Route: 042
  8. MS04, MORPHINE SULFATE [Concomitant]
  9. REMICADE [Suspect]
     Route: 042
     Dates: start: 20090119
  10. DILAUDID [Concomitant]
     Route: 042
  11. REMICADE [Suspect]
     Indication: INFLAMMATORY BOWEL DISEASE
     Route: 042
     Dates: start: 20080204
  12. NULYTELY [Concomitant]
  13. NEOMYCIN SULFATE TAB [Concomitant]
     Route: 048
  14. CLEOCIN HYDROCHLORIDE [Concomitant]
     Route: 042
  15. ZANTAC [Concomitant]
     Route: 042
  16. LOVENOX [Concomitant]
     Route: 058
  17. COUMADIN [Concomitant]

REACTIONS (3)
  - INTESTINAL RESECTION [None]
  - POUCHITIS [None]
  - ILEOSTOMY CLOSURE [None]
